FAERS Safety Report 24333703 (Version 1)
Quarter: 2024Q3

REPORT INFORMATION
  Report Type: Spontaneous
  Country: CN (occurrence: CN)
  Receive Date: 20240918
  Receipt Date: 20240918
  Transmission Date: 20241017
  Serious: Yes (Other)
  Sender: JOHNSON AND JOHNSON
  Company Number: CN-JNJFOC-20240915487

PATIENT
  Age: 39 Year
  Sex: Male
  Weight: 60 kg

DRUGS (4)
  1. DARZALEX [Suspect]
     Active Substance: DARATUMUMAB
     Indication: Acute lymphocytic leukaemia
     Route: 041
     Dates: start: 20240823, end: 20240823
  2. RITUXIMAB [Suspect]
     Active Substance: RITUXIMAB
     Indication: Acute lymphocytic leukaemia
     Route: 041
     Dates: start: 20240814, end: 20240814
  3. CYCLOPHOSPHAMIDE [Suspect]
     Active Substance: CYCLOPHOSPHAMIDE
     Indication: Acute lymphocytic leukaemia
     Route: 041
     Dates: start: 20240820, end: 20240820
  4. VINCRISTINE [Suspect]
     Active Substance: VINCRISTINE
     Indication: Acute lymphocytic leukaemia
     Route: 041
     Dates: start: 20240820, end: 20240820

REACTIONS (5)
  - Myelosuppression [Unknown]
  - Posterior reversible encephalopathy syndrome [Unknown]
  - Infection [Not Recovered/Not Resolved]
  - Lymphoid tissue hyperplasia [Unknown]
  - Off label use [Unknown]

NARRATIVE: CASE EVENT DATE: 20240827
